FAERS Safety Report 6199247-6 (Version None)
Quarter: 2009Q2

REPORT INFORMATION
  Report Type: 
  Country: None (occurrence: None)
  Receive Date: 20090522
  Receipt Date: 20090514
  Transmission Date: 20091009
  Serious: Yes (Other)
  Sender: FDA-Public Use
  Company Number: ES-ELI_LILLY_AND_COMPANY-ES200905002855

PATIENT
  Age: 76 Year
  Sex: Female

DRUGS (3)
  1. ZYPREXA [Suspect]
     Dosage: 20 MG, UNK
     Route: 048
     Dates: start: 20080531
  2. DEPAKENE [Concomitant]
     Dosage: 500 MG, UNK
     Route: 048
     Dates: start: 20080606
  3. LEXATIN [Concomitant]
     Dosage: 3 MG, UNK
     Route: 048
     Dates: start: 20080531

REACTIONS (4)
  - AGGRESSION [None]
  - CONFUSIONAL STATE [None]
  - DISORIENTATION [None]
  - SOMNOLENCE [None]
